FAERS Safety Report 17227562 (Version 2)
Quarter: 2020Q1

REPORT INFORMATION
  Report Type: Spontaneous
  Country: US (occurrence: US)
  Receive Date: 20200103
  Receipt Date: 20200206
  Transmission Date: 20200409
  Serious: Yes (Other)
  Sender: FDA-Public Use
  Company Number: US-ALLERGAN-1952592US

PATIENT
  Age: 57 Year
  Sex: Female

DRUGS (3)
  1. OBETICHOLIC ACID [Suspect]
     Active Substance: OBETICHOLIC ACID
     Indication: PRIMARY BILIARY CHOLANGITIS
     Dosage: 5 MG, QD
     Route: 048
     Dates: start: 20181103, end: 2019
  2. OBETICHOLIC ACID [Suspect]
     Active Substance: OBETICHOLIC ACID
     Dosage: 10 MG, QD
     Route: 048
     Dates: start: 201907
  3. URSO 250 [Suspect]
     Active Substance: URSODIOL
     Indication: PRODUCT USED FOR UNKNOWN INDICATION
     Dosage: 300 MG, TID
     Route: 048
     Dates: start: 20180914

REACTIONS (11)
  - Gastrooesophageal reflux disease [Recovered/Resolved]
  - Laryngeal oedema [Recovered/Resolved]
  - Sinus pain [Recovered/Resolved]
  - Nausea [Unknown]
  - Cough [Unknown]
  - Taste disorder [Unknown]
  - Therapy cessation [Unknown]
  - Abdominal discomfort [Unknown]
  - Ear pain [Recovered/Resolved]
  - Oropharyngeal pain [Recovered/Resolved]
  - Bronchitis [Unknown]

NARRATIVE: CASE EVENT DATE: 2019
